FAERS Safety Report 16114427 (Version 2)
Quarter: 2019Q1

REPORT INFORMATION
  Report Type: Spontaneous
  Country: FR (occurrence: FR)
  Receive Date: 20190325
  Receipt Date: 20190327
  Transmission Date: 20190418
  Serious: Yes (Life-Threatening, Disabling)
  Sender: FDA-Public Use
  Company Number: FR-PFIZER INC-2019124529

PATIENT
  Age: 1 Year
  Sex: Male
  Weight: 10 kg

DRUGS (1)
  1. DILANTIN [Suspect]
     Active Substance: PHENYTOIN
     Indication: GENERALISED TONIC-CLONIC SEIZURE
     Dosage: 175 MG, SINGLE (LOADING DOSE 150 MG  AND MAINTENANCE DOSE 25 MG)
     Route: 041
     Dates: start: 20190202, end: 20190202

REACTIONS (4)
  - Circulatory collapse [Recovered/Resolved]
  - Overdose [Recovered/Resolved]
  - Cerebellar haemorrhage [Recovered/Resolved with Sequelae]
  - Respiratory failure [Recovered/Resolved]

NARRATIVE: CASE EVENT DATE: 20190202
